FAERS Safety Report 23848324 (Version 3)
Quarter: 2024Q3

REPORT INFORMATION
  Report Type: Report from Study
  Country: US (occurrence: US)
  Receive Date: 20240513
  Receipt Date: 20240730
  Transmission Date: 20241017
  Serious: Yes (Other)
  Sender: APELLIS PHARMACEUTICALS
  Company Number: US-APELLIS PHARMACEUTICALS-APL-2024-004394

PATIENT

DRUGS (1)
  1. PEGCETACOPLAN [Suspect]
     Active Substance: PEGCETACOPLAN
     Indication: Paroxysmal nocturnal haemoglobinuria
     Dosage: 1080MG/20ML, TWICE A WEEK
     Route: 058
     Dates: start: 20220107

REACTIONS (7)
  - Hepatic cirrhosis [Unknown]
  - Faeces discoloured [Unknown]
  - Liver disorder [Unknown]
  - Diverticulitis [Recovering/Resolving]
  - Constipation [Recovering/Resolving]
  - Diarrhoea [Unknown]
  - Pyrexia [Recovering/Resolving]

NARRATIVE: CASE EVENT DATE: 20220410
